FAERS Safety Report 7382679-8 (Version None)
Quarter: 2011Q1

REPORT INFORMATION
  Report Type: 
  Country: None (occurrence: None)
  Receive Date: 20110329
  Receipt Date: 20110317
  Transmission Date: 20110831
  Serious: Yes (Hospitalization, Other)
  Sender: FDA-Public Use
  Company Number: US-MYLANLABS-2011S1005733

PATIENT
  Age: 23 Year
  Sex: Female
  Weight: 58.97 kg

DRUGS (1)
  1. PAROXETINE HCL [Suspect]
     Indication: DEPRESSION
     Route: 048
     Dates: end: 20110101

REACTIONS (9)
  - BRAIN INJURY [None]
  - BRAIN HYPOXIA [None]
  - LOSS OF CONSCIOUSNESS [None]
  - CONVULSION [None]
  - AMNESIA [None]
  - RESPIRATORY ARREST [None]
  - FEELING HOT [None]
  - ARRHYTHMIA [None]
  - CONFUSIONAL STATE [None]
